FAERS Safety Report 5514785-4 (Version None)
Quarter: 2007Q4

REPORT INFORMATION
  Report Type: 
  Country: None (occurrence: None)
  Receive Date: 20071113
  Receipt Date: 20071106
  Transmission Date: 20080405
  Serious: Yes (Hospitalization)
  Sender: FDA-Public Use
  Company Number: GB-SHR-GB-2007-036665

PATIENT
  Age: 58 Year
  Sex: Female

DRUGS (14)
  1. BETASERON [Suspect]
     Dosage: 8 MIU, EVERY 2D
     Route: 058
     Dates: start: 20070730
  2. LEVOTHYROXINE SODIUM [Concomitant]
     Dosage: 150 A?G, 1X/DAY
     Route: 048
  3. PREGABALIN [Concomitant]
     Dosage: 300 MG, 3X/DAY
     Route: 048
  4. PARACETAMOL [Concomitant]
     Dosage: 1 G, 4X/DAY
     Route: 048
  5. LANSOPRAZOLE [Concomitant]
     Dosage: 30 MG, 1X/DAY
     Route: 048
     Dates: start: 20070830
  6. GAVISCON [Concomitant]
     Dosage: 5-10 ML, 4X/DAY
     Route: 048
     Dates: start: 20070830
  7. RAMIPRIL [Concomitant]
     Dosage: 1.25 MG, 1X/DAY
     Route: 048
     Dates: start: 20070903
  8. CLOPIDOGREL [Concomitant]
     Dosage: 75 MG, 1X/DAY
     Route: 048
     Dates: start: 20070903
  9. ASPIRIN [Concomitant]
     Dosage: 75 MG, 1X/DAY
     Route: 048
     Dates: start: 20070903
  10. OXYNORM [Concomitant]
     Dosage: 20 MG, 3X/DAY
     Route: 048
  11. OXYNORM [Concomitant]
     Dosage: 40 MG, BED T.
     Route: 048
  12. ALBUTEROL [Concomitant]
     Dosage: 100 MG, AS REQ'D
     Route: 055
     Dates: start: 20070903
  13. DESLORATADINE [Concomitant]
     Dosage: 5 MG, 1X/DAY, PRN
  14. PROCHLORPERAZINE [Concomitant]
     Dosage: 5 MG, AS REQ'D

REACTIONS (2)
  - ANGINA PECTORIS [None]
  - POST PROCEDURAL COMPLICATION [None]
